FAERS Safety Report 8414884-3 (Version None)
Quarter: 2012Q2

REPORT INFORMATION
  Report Type: 
  Country: None (occurrence: None)
  Receive Date: 20120601
  Receipt Date: 20120601
  Transmission Date: 20120825
  Serious: Yes (Life-Threatening)
  Sender: FDA-Public Use
  Company Number: None

PATIENT
  Age: 92 Year
  Sex: Male

DRUGS (1)
  1. OXYCODONE HCL [Suspect]
     Indication: GOUT
     Dosage: 2.5 MG PRN PO
     Route: 048
     Dates: start: 20120508, end: 20120508

REACTIONS (11)
  - LETHARGY [None]
  - SEDATION [None]
  - RENAL FAILURE ACUTE [None]
  - SOMNOLENCE [None]
  - PULMONARY OEDEMA [None]
  - RESPIRATORY FAILURE [None]
  - BLOOD PH DECREASED [None]
  - MENTAL STATUS CHANGES [None]
  - OVERDOSE [None]
  - HYPERCAPNIA [None]
  - LOBAR PNEUMONIA [None]
